FAERS Safety Report 15784959 (Version 3)
Quarter: 2019Q1

REPORT INFORMATION
  Report Type: Spontaneous
  Country: CN (occurrence: CN)
  Receive Date: 20190103
  Receipt Date: 20190309
  Transmission Date: 20190417
  Serious: Yes (Other)
  Sender: FDA-Public Use
  Company Number: CN-ROCHE-2236433

PATIENT
  Age: 56 Year
  Sex: Male

DRUGS (19)
  1. BEVACIZUMAB. [Suspect]
     Active Substance: BEVACIZUMAB
     Indication: METASTASES TO LIVER
     Dosage: 5MG/KG ;300MG
     Route: 042
     Dates: start: 20140319, end: 20140620
  2. BEVACIZUMAB. [Suspect]
     Active Substance: BEVACIZUMAB
     Indication: RECTAL CANCER
     Dosage: 5MG/KG ;300MG
     Route: 042
     Dates: start: 20150219, end: 201505
  3. FLUOROURACIL. [Suspect]
     Active Substance: FLUOROURACIL
     Route: 065
     Dates: start: 201507, end: 201510
  4. FOLINIC ACID [Suspect]
     Active Substance: LEUCOVORIN
     Indication: METASTASES TO LIVER
     Route: 065
     Dates: start: 20140319, end: 20140620
  5. IRINOTECAN [Suspect]
     Active Substance: IRINOTECAN
     Dosage: 300MG
     Route: 065
     Dates: start: 20140703
  6. OXALIPLATIN. [Suspect]
     Active Substance: OXALIPLATIN
     Indication: RECTAL CANCER
     Dosage: 150MG
     Route: 065
     Dates: start: 20140319, end: 20140620
  7. BEVACIZUMAB. [Suspect]
     Active Substance: BEVACIZUMAB
     Route: 042
     Dates: start: 201507, end: 201510
  8. OXALIPLATIN. [Suspect]
     Active Substance: OXALIPLATIN
     Indication: METASTASES TO LIVER
     Dosage: 150MG
     Route: 065
     Dates: start: 20140219, end: 20140305
  9. FLUOROURACIL. [Suspect]
     Active Substance: FLUOROURACIL
     Indication: RECTAL CANCER
     Dosage: 4750MG
     Route: 065
     Dates: start: 20140319, end: 20140620
  10. FLUOROURACIL. [Suspect]
     Active Substance: FLUOROURACIL
     Dosage: 4750MG
     Route: 065
     Dates: start: 20150219, end: 20150527
  11. FOLINIC ACID [Suspect]
     Active Substance: LEUCOVORIN
     Route: 065
     Dates: start: 201507, end: 201510
  12. IRINOTECAN [Suspect]
     Active Substance: IRINOTECAN
     Indication: RECTAL CANCER
     Dosage: 300MG
     Route: 065
     Dates: start: 20140319, end: 20140620
  13. IRINOTECAN [Suspect]
     Active Substance: IRINOTECAN
     Dosage: 300MG
     Route: 065
     Dates: start: 20150219, end: 20150527
  14. FLUOROURACIL. [Suspect]
     Active Substance: FLUOROURACIL
     Dosage: 4750MG
     Route: 065
     Dates: start: 20140703
  15. FOLINIC ACID [Suspect]
     Active Substance: LEUCOVORIN
     Indication: RECTAL CANCER
     Route: 065
     Dates: start: 20140703
  16. FOLINIC ACID [Suspect]
     Active Substance: LEUCOVORIN
     Route: 065
     Dates: start: 20150219, end: 20150527
  17. IRINOTECAN [Suspect]
     Active Substance: IRINOTECAN
     Indication: METASTASES TO LIVER
     Dosage: 300MG
     Route: 065
     Dates: start: 20140219, end: 20140305
  18. IRINOTECAN [Suspect]
     Active Substance: IRINOTECAN
     Route: 065
     Dates: start: 201507, end: 201510
  19. FLUOROURACIL. [Suspect]
     Active Substance: FLUOROURACIL
     Indication: METASTASES TO LIVER
     Dosage: 5250 MG
     Route: 065
     Dates: start: 20140219, end: 20140305

REACTIONS (4)
  - Neutrophil count decreased [Unknown]
  - Neurotoxicity [Unknown]
  - Disease progression [Unknown]
  - Fatigue [Unknown]
